FAERS Safety Report 8898386 (Version 2)
Quarter: 2012Q4

REPORT INFORMATION
  Report Type: 
  Country: US (occurrence: US)
  Receive Date: 20121109
  Receipt Date: 20121130
  Transmission Date: 20130627
  Serious: Yes (Hospitalization)
  Sender: FDA-Public Use
  Company Number: US-ACTELION-A-US2012-73648

PATIENT
  Age: 65 Year
  Sex: Female

DRUGS (3)
  1. TRACLEER [Suspect]
     Indication: PULMONARY ARTERIAL HYPERTENSION
     Dosage: UNK
     Route: 048
  2. COUMADIN [Concomitant]
  3. REMODULIN [Concomitant]

REACTIONS (5)
  - Irritable bowel syndrome [Unknown]
  - Diarrhoea [Unknown]
  - Abdominal discomfort [Unknown]
  - Catheter site infection [Unknown]
  - Gastrointestinal pain [None]
